FAERS Safety Report 5858854-8 (Version None)
Quarter: 2008Q3

REPORT INFORMATION
  Report Type: 
  Country: None (occurrence: None)
  Receive Date: 20080826
  Receipt Date: 20080815
  Transmission Date: 20090109
  Serious: Yes (Death)
  Sender: FDA-Public Use
  Company Number: GB-GENENTECH-266614

PATIENT
  Age: 76 Year
  Sex: Female

DRUGS (9)
  1. MABTHERA [Suspect]
     Indication: NON-HODGKIN'S LYMPHOMA
     Dosage: 375 MG/M2, UNK
     Route: 042
  2. FLUDARABINE [Suspect]
     Indication: NON-HODGKIN'S LYMPHOMA
     Dosage: 40 MG/M2, UNK
     Route: 048
  3. ATOVAQUONE [Concomitant]
     Indication: DRUG USE FOR UNKNOWN INDICATION
  4. CO-TRIMOXAZOLE [Concomitant]
     Indication: PROPHYLAXIS
  5. CYCLOPHOSPHAMIDE [Concomitant]
     Indication: NON-HODGKIN'S LYMPHOMA
     Dosage: 750 MG/M2, UNK
     Route: 042
     Dates: start: 20021001
  6. DEXAMETHASONE TAB [Concomitant]
     Indication: NON-HODGKIN'S LYMPHOMA
     Dosage: 20 MG, UNK
     Route: 048
  7. MITOXANTRONE [Concomitant]
     Indication: NON-HODGKIN'S LYMPHOMA
     Dosage: 12 MG/M2, UNK
     Route: 042
  8. PREDNISOLONE [Concomitant]
     Indication: NON-HODGKIN'S LYMPHOMA
     Dosage: 40 MG/M2, UNK
     Route: 048
     Dates: start: 20021001
  9. VINCRISTINE [Concomitant]
     Indication: NON-HODGKIN'S LYMPHOMA
     Dosage: 2 MG, UNK
     Route: 042
     Dates: start: 20021001

REACTIONS (1)
  - PNEUMONIA FUNGAL [None]
